FAERS Safety Report 7571565-6 (Version None)
Quarter: 2011Q2

REPORT INFORMATION
  Report Type: 
  Country: None (occurrence: None)
  Receive Date: 20110624
  Receipt Date: 20110610
  Transmission Date: 20111010
  Serious: Yes (Other)
  Sender: FDA-Public Use
  Company Number: US-WATSON-2011-08174

PATIENT
  Sex: Female

DRUGS (2)
  1. TAMOXIFEN CITRATE [Suspect]
     Indication: BREAST CANCER
     Dosage: 20 MG, DAILY
     Route: 048
     Dates: start: 20060901, end: 20061215
  2. TRELSTAR [Suspect]
     Indication: BREAST CANCER FEMALE
     Dosage: ONCE EVERY 28 DAYS
     Route: 030
     Dates: start: 20060610

REACTIONS (2)
  - RETINOPATHY [None]
  - RETINAL VEIN OCCLUSION [None]
